FAERS Safety Report 11173668 (Version 2)
Quarter: 2015Q2

REPORT INFORMATION
  Report Type: Spontaneous
  Country: US (occurrence: US)
  Receive Date: 20150609
  Receipt Date: 20150610
  Transmission Date: 20150821
  Serious: Yes (Death, Hospitalization, Other)
  Sender: FDA-Public Use
  Company Number: US-ROCHE-1585256

PATIENT
  Age: 60 Year
  Sex: Female
  Weight: 76.6 kg

DRUGS (8)
  1. CAMPTOSAR [Suspect]
     Active Substance: IRINOTECAN HYDROCHLORIDE
     Indication: COLORECTAL CANCER METASTATIC
     Dosage: CYCLE 1; 180 MG/M^2; DAY 1, 15
     Route: 042
     Dates: start: 20150303
  2. BEVACIZUMAB [Suspect]
     Active Substance: BEVACIZUMAB
     Indication: PRODUCT USED FOR UNKNOWN INDICATION
     Route: 065
     Dates: start: 201408, end: 201502
  3. 5-FU [Concomitant]
     Active Substance: FLUOROURACIL
     Route: 065
     Dates: start: 201408, end: 201502
  4. CAMPTOSAR [Suspect]
     Active Substance: IRINOTECAN HYDROCHLORIDE
     Dosage: CYCLE 3; 180 MG/M^2; DAY 1, 15?DATE OF MOST RECENT DOSE PRIOR TO AE : 01/MAY/2015
     Route: 042
     Dates: start: 20150501, end: 20150501
  5. ERBITUX [Suspect]
     Active Substance: CETUXIMAB
     Dosage: CYCLE 3; 500 MG/M^2; DAY 1, 15?DATE OF MOST RECENT DOSE PRIOR TO AE : 01/MAY/2015
     Route: 042
     Dates: start: 20150501, end: 20150501
  6. LEUCOVORIN CALCIUM. [Concomitant]
     Active Substance: LEUCOVORIN CALCIUM
     Route: 065
     Dates: start: 201408, end: 201502
  7. ELOXATIN [Concomitant]
     Active Substance: OXALIPLATIN
     Route: 065
     Dates: start: 201408, end: 201502
  8. ERBITUX [Suspect]
     Active Substance: CETUXIMAB
     Indication: COLORECTAL CANCER METASTATIC
     Dosage: CYCLE 1; 500 MG/M^2; DAY 1, 15
     Route: 042
     Dates: start: 20150303

REACTIONS (6)
  - Pericardial effusion [Unknown]
  - Acute respiratory failure [Unknown]
  - Encephalopathy [Unknown]
  - Sinus tachycardia [Unknown]
  - Embolism [Unknown]
  - Neoplasm [Fatal]

NARRATIVE: CASE EVENT DATE: 20150513
